FAERS Safety Report 19091399 (Version 1)
Quarter: 2021Q2

REPORT INFORMATION
  Report Type: Spontaneous
  Country: US (occurrence: US)
  Receive Date: 20210405
  Receipt Date: 20210405
  Transmission Date: 20210717
  Serious: No
  Sender: FDA-Public Use
  Company Number: US-AUROBINDO-AUR-APL-2020-015055

PATIENT
  Sex: Female

DRUGS (1)
  1. SULFAMETHOXAZOLE AND TRIMETHOPRIM TABLETS USP 800/160 MG [Suspect]
     Active Substance: SULFAMETHOXAZOLE\TRIMETHOPRIM
     Indication: PRODUCT USED FOR UNKNOWN INDICATION
     Dosage: UNK
     Route: 065

REACTIONS (9)
  - Oropharyngeal pain [Unknown]
  - Dyspnoea [Unknown]
  - Pollakiuria [Unknown]
  - Eye irritation [Unknown]
  - Burning sensation [Unknown]
  - Drug ineffective [Unknown]
  - Hot flush [Unknown]
  - Eczema [Unknown]
  - Headache [Unknown]
